FAERS Safety Report 14254105 (Version 2)
Quarter: 2018Q1

REPORT INFORMATION
  Report Type: Report from Study
  Country: US (occurrence: US)
  Receive Date: 20171206
  Receipt Date: 20180208
  Transmission Date: 20180508
  Serious: Yes (Other)
  Sender: FDA-Public Use
  Company Number: US-AMGEN-USASL2017179465

PATIENT
  Age: 49 Year
  Sex: Female

DRUGS (1)
  1. ENBREL [Suspect]
     Active Substance: ETANERCEPT
     Indication: RHEUMATOID ARTHRITIS
     Dosage: 50 MG, QWK
     Route: 065

REACTIONS (18)
  - Drug effect incomplete [Unknown]
  - Nerve injury [Unknown]
  - Peripheral swelling [Unknown]
  - Infection [Unknown]
  - Eye discharge [Unknown]
  - Nervousness [Unknown]
  - Ocular hyperaemia [Recovering/Resolving]
  - Joint swelling [Unknown]
  - Joint range of motion decreased [Unknown]
  - Injection site pain [Unknown]
  - Memory impairment [Not Recovered/Not Resolved]
  - Disturbance in attention [Not Recovered/Not Resolved]
  - Angina pectoris [Unknown]
  - Dyspnoea [Unknown]
  - Headache [Not Recovered/Not Resolved]
  - Swelling [Unknown]
  - Hepatitis B [Recovered/Resolved]
  - Pain [Not Recovered/Not Resolved]

NARRATIVE: CASE EVENT DATE: 2017
